FAERS Safety Report 22067490 (Version 1)
Quarter: 2023Q1

REPORT INFORMATION
  Report Type: Report from Study
  Country: CA (occurrence: CA)
  Receive Date: 20230307
  Receipt Date: 20230307
  Transmission Date: 20230418
  Serious: Yes (Life-Threatening, Other)
  Sender: FDA-Public Use
  Company Number: CA-CELLTRION INC.-2023CA004709

PATIENT

DRUGS (1)
  1. TRUXIMA [Suspect]
     Active Substance: RITUXIMAB-ABBS
     Indication: Immune thrombocytopenia
     Dosage: 375 MG/M2 X 2 M2 = 750 MG/DOSE, WEEKLY X 4 WEEKS IV/SC (TOTAL QUANTITY REQUESTED: 3000MG)

REACTIONS (2)
  - Immune thrombocytopenia [Unknown]
  - Off label use [Unknown]
